FAERS Safety Report 13304223 (Version 3)
Quarter: 2017Q2

REPORT INFORMATION
  Report Type: Spontaneous
  Country: PT (occurrence: PT)
  Receive Date: 20170308
  Receipt Date: 20170609
  Transmission Date: 20170830
  Serious: Yes (Other)
  Sender: FDA-Public Use
  Company Number: PT-ROCHE-1903245

PATIENT
  Age: 48 Year
  Sex: Female
  Weight: 77 kg

DRUGS (3)
  1. DOCETAXEL HOSPIRA [Concomitant]
     Active Substance: DOCETAXEL
     Indication: PRODUCT USED FOR UNKNOWN INDICATION
     Dosage: 160MG/16ML, 135MG OF 21 IN 21 DAYS )
     Route: 065
     Dates: start: 20170113
  2. HERCEPTIN [Concomitant]
     Active Substance: TRASTUZUMAB
     Indication: BREAST NEOPLASM
     Dosage: 150MG, LOADING DOSE OF 632MG AND MAINTENANCE DOSE OF 474MG OF 21 IN 21 DAYS
     Route: 065
     Dates: start: 20170113
  3. PERJETA [Suspect]
     Active Substance: PERTUZUMAB
     Indication: BREAST NEOPLASM
     Route: 042
     Dates: start: 20170113, end: 20170224

REACTIONS (2)
  - Eyelid oedema [Recovered/Resolved]
  - Lacrimation increased [Recovered/Resolved]

NARRATIVE: CASE EVENT DATE: 20170131
